FAERS Safety Report 24799481 (Version 3)
Quarter: 2025Q1

REPORT INFORMATION
  Report Type: Report from Study
  Country: IN (occurrence: IN)
  Receive Date: 20250102
  Receipt Date: 20250204
  Transmission Date: 20250408
  Serious: Yes (Other)
  Sender: ROCHE
  Company Number: IN-ROCHE-10000088638

PATIENT
  Age: 62 Year
  Sex: Male
  Weight: 113 kg

DRUGS (2)
  1. TECENTRIQ [Suspect]
     Active Substance: ATEZOLIZUMAB
     Indication: Hepatocellular carcinoma
     Route: 040
     Dates: start: 20240722
  2. TECENTRIQ [Suspect]
     Active Substance: ATEZOLIZUMAB
     Route: 040
     Dates: start: 20240722

REACTIONS (23)
  - Tumour thrombosis [Unknown]
  - Off label use [Unknown]
  - Body mass index increased [Unknown]
  - Overweight [Unknown]
  - Blood pressure systolic increased [Unknown]
  - Blood pressure diastolic decreased [Unknown]
  - Fatigue [Unknown]
  - Bilirubin conjugated increased [Unknown]
  - Hepatic lesion [Unknown]
  - Hepatic mass [Unknown]
  - Hepatic cyst [Unknown]
  - Splenomegaly [Unknown]
  - Pulmonary mass [Unknown]
  - Hepatic neoplasm [Unknown]
  - Aspartate aminotransferase increased [Unknown]
  - Platelet count decreased [Unknown]
  - Red cell distribution width increased [Unknown]
  - Blood bilirubin increased [Unknown]
  - Blood albumin decreased [Unknown]
  - Weight decreased [Unknown]
  - Blood pressure increased [Unknown]
  - Creatinine renal clearance increased [Unknown]
  - Protein total decreased [Unknown]
